FAERS Safety Report 12971041 (Version 2)
Quarter: 2016Q4

REPORT INFORMATION
  Report Type: Spontaneous
  Country: US (occurrence: US)
  Receive Date: 20161123
  Receipt Date: 20161128
  Transmission Date: 20170207
  Serious: No
  Sender: FDA-Public Use
  Company Number: US-JAZZ-2016-US-018918

PATIENT
  Age: 59 Year
  Sex: Female

DRUGS (37)
  1. XYREM [Suspect]
     Active Substance: SODIUM OXYBATE
     Dosage: DOSE ADJUSTMENTS
     Route: 048
     Dates: start: 201108, end: 201210
  2. CITRACAL PLUS [Concomitant]
     Active Substance: CALCIUM\MAGNESIUM\VITAMIN D\ZINC
  3. PHENTERMINE HCL [Concomitant]
     Active Substance: PHENTERMINE HYDROCHLORIDE
  4. XYREM [Suspect]
     Active Substance: SODIUM OXYBATE
     Dosage: 4.5 G, BID
     Route: 048
     Dates: start: 201210
  5. PILOCARPINE HCL [Concomitant]
     Active Substance: PILOCARPINE HYDROCHLORIDE
  6. AMANTADINE [Concomitant]
     Active Substance: AMANTADINE
  7. LEXAPRO [Concomitant]
     Active Substance: ESCITALOPRAM OXALATE
  8. PEPCID                             /00305201/ [Concomitant]
     Active Substance: ALUMINUM HYDROXIDE\MAGNESIUM CARBONATE
  9. PRAVACHOL [Suspect]
     Active Substance: PRAVASTATIN SODIUM
     Indication: PRODUCT USED FOR UNKNOWN INDICATION
     Dosage: UNK
     Dates: start: 201609
  10. ALLEGRA-D 24 HOUR [Concomitant]
     Active Substance: FEXOFENADINE HYDROCHLORIDE\PSEUDOEPHEDRINE HYDROCHLORIDE
  11. VITAMINS WITH MINERALS [Concomitant]
     Active Substance: MINERALS\VITAMINS
  12. COLACE [Concomitant]
     Active Substance: DOCUSATE SODIUM
  13. ESTRADIOL. [Concomitant]
     Active Substance: ESTRADIOL
  14. TRAMADOL HCL [Concomitant]
     Active Substance: TRAMADOL HYDROCHLORIDE
  15. VITAMIN C [Concomitant]
     Active Substance: ASCORBIC ACID
  16. DHEA [Concomitant]
     Active Substance: PRASTERONE
  17. XANAX [Concomitant]
     Active Substance: ALPRAZOLAM
  18. XANAX XR [Concomitant]
     Active Substance: ALPRAZOLAM
  19. VICODIN ES [Concomitant]
     Active Substance: ACETAMINOPHEN\HYDROCODONE BITARTRATE
  20. FLAXSEED [Concomitant]
     Active Substance: FLAX SEED
  21. PRILOSEC  DR                         /00661201/ [Concomitant]
  22. XYREM [Suspect]
     Active Substance: SODIUM OXYBATE
     Indication: NARCOLEPSY
     Dosage: 2.25 G, BID
     Route: 048
     Dates: start: 201108, end: 201108
  23. ROBITUSSIN MUCUS PLUS CHEST CONGESTION [Concomitant]
     Active Substance: GUAIFENESIN
  24. ATENOLOL. [Concomitant]
     Active Substance: ATENOLOL
  25. COMBIPATCH [Concomitant]
     Active Substance: ESTRADIOL\NORETHINDRONE ACETATE
  26. VITAMIN E                          /00110501/ [Concomitant]
     Active Substance: TOCOPHEROL
  27. MUCINEX ER [Concomitant]
  28. OMEGA-3 FISH OIL [Concomitant]
     Active Substance: FISH OIL\OMEGA-3 FATTY ACIDS
  29. SIMVASTATIN. [Concomitant]
     Active Substance: SIMVASTATIN
  30. VAGIFEM [Concomitant]
     Active Substance: ESTRADIOL
  31. PREVACID [Concomitant]
     Active Substance: LANSOPRAZOLE
  32. ALEVE [Concomitant]
     Active Substance: NAPROXEN SODIUM
  33. FLEXERIL [Concomitant]
     Active Substance: CYCLOBENZAPRINE HYDROCHLORIDE
  34. LYRICA [Concomitant]
     Active Substance: PREGABALIN
  35. TOPAMAX [Concomitant]
     Active Substance: TOPIRAMATE
  36. TRAZODONE [Concomitant]
     Active Substance: TRAZODONE HYDROCHLORIDE
  37. VALTREX [Concomitant]
     Active Substance: VALACYCLOVIR HYDROCHLORIDE

REACTIONS (2)
  - Blood cholesterol increased [Not Recovered/Not Resolved]
  - Nausea [Not Recovered/Not Resolved]

NARRATIVE: CASE EVENT DATE: 201609
